FAERS Safety Report 5684101-6 (Version None)
Quarter: 2008Q1

REPORT INFORMATION
  Report Type: 
  Country: None (occurrence: None)
  Receive Date: 20080327
  Receipt Date: 20080327
  Transmission Date: 20080703
  Serious: Yes (Other)
  Sender: FDA-Public Use
  Company Number: None

PATIENT
  Age: 26 Year
  Sex: Female
  Weight: 63.5036 kg

DRUGS (2)
  1. FLUOXETINE [Suspect]
     Indication: DEPRESSION
     Dosage: 5MG EVERY DAY PO
     Route: 048
     Dates: start: 20030101, end: 20070101
  2. FLUOXETINE [Suspect]
     Indication: OBSESSIVE-COMPULSIVE DISORDER
     Dosage: 5MG EVERY DAY PO
     Route: 048
     Dates: start: 20030101, end: 20070101

REACTIONS (1)
  - DYSKINESIA [None]
